FAERS Safety Report 4682918-8 (Version None)
Quarter: 2005Q2

REPORT INFORMATION
  Report Type: 
  Country: None (occurrence: None)
  Receive Date: 20050602
  Receipt Date: 20050130
  Transmission Date: 20051028
  Serious: No
  Sender: FDA-Public Use
  Company Number: US_0502112322

PATIENT
  Age: 52 Year
  Sex: Male

DRUGS (1)
  1. CYMBALTA [Suspect]
     Dosage: 60 MG DAY
     Dates: start: 20050110

REACTIONS (2)
  - AGITATION [None]
  - IRRITABILITY [None]
